FAERS Safety Report 20519703 (Version 1)
Quarter: 2022Q1

REPORT INFORMATION
  Report Type: Spontaneous
  Country: US (occurrence: US)
  Receive Date: 20220225
  Receipt Date: 20220225
  Transmission Date: 20220424
  Serious: Yes (Other)
  Sender: FDA-Public Use
  Company Number: US-GLAXOSMITHKLINE-US2022GSK032055

PATIENT

DRUGS (14)
  1. ZANTAC [Suspect]
     Active Substance: RANITIDINE HYDROCHLORIDE
     Indication: Gastrooesophageal reflux disease
     Dosage: 75 MG, QD, 1X DAILY
     Route: 065
     Dates: start: 201901, end: 202112
  2. ZANTAC [Suspect]
     Active Substance: RANITIDINE HYDROCHLORIDE
     Indication: Chronic sinusitis
  3. ZANTAC [Suspect]
     Active Substance: RANITIDINE HYDROCHLORIDE
     Indication: Gastrooesophageal reflux disease
     Dosage: 75 MG, QD, 1X DAILY
     Route: 065
     Dates: start: 201901, end: 202112
  4. ZANTAC [Suspect]
     Active Substance: RANITIDINE HYDROCHLORIDE
     Indication: Chronic sinusitis
  5. ZANTAC [Suspect]
     Active Substance: RANITIDINE HYDROCHLORIDE
     Indication: Gastrooesophageal reflux disease
     Dosage: 75 MG, QD, 1X DAILY
     Route: 065
     Dates: start: 201901, end: 202112
  6. ZANTAC [Suspect]
     Active Substance: RANITIDINE HYDROCHLORIDE
     Indication: Chronic sinusitis
  7. RANITIDINE [Suspect]
     Active Substance: RANITIDINE
     Indication: Gastrooesophageal reflux disease
     Dosage: 75 MG, QD, 1X DAILY
     Route: 065
     Dates: start: 201901, end: 202112
  8. RANITIDINE [Suspect]
     Active Substance: RANITIDINE
     Indication: Chronic sinusitis
  9. RANITIDINE [Suspect]
     Active Substance: RANITIDINE
     Indication: Gastrooesophageal reflux disease
     Dosage: 75 MG, QD, 1X DAILY
     Route: 065
     Dates: start: 201901, end: 202112
  10. RANITIDINE [Suspect]
     Active Substance: RANITIDINE
     Indication: Chronic sinusitis
  11. RANITIDINE [Suspect]
     Active Substance: RANITIDINE
     Indication: Gastrooesophageal reflux disease
     Dosage: 75 MG, QD, 1X DAILY
     Route: 065
     Dates: start: 201901, end: 202112
  12. RANITIDINE [Suspect]
     Active Substance: RANITIDINE
     Indication: Chronic sinusitis
  13. RANITIDINE [Suspect]
     Active Substance: RANITIDINE
     Indication: Gastrooesophageal reflux disease
     Dosage: 75 MG, QD, 1X DAILY
     Route: 065
     Dates: start: 201901, end: 202112
  14. RANITIDINE [Suspect]
     Active Substance: RANITIDINE
     Indication: Chronic sinusitis

REACTIONS (1)
  - Renal cancer [Unknown]
